FAERS Safety Report 25772260 (Version 1)
Quarter: 2025Q3

REPORT INFORMATION
  Report Type: Spontaneous
  Country: JP (occurrence: JP)
  Receive Date: 20250908
  Receipt Date: 20250908
  Transmission Date: 20251021
  Serious: Yes (Other)
  Sender: GLAXOSMITHKLINE
  Company Number: JP-GSKJP-JP2025JPN112175AA

PATIENT
  Age: 65 Year
  Sex: Female

DRUGS (1)
  1. DAPRODUSTAT [Suspect]
     Active Substance: DAPRODUSTAT
     Indication: Nephrogenic anaemia

REACTIONS (3)
  - Neoplasm malignant [Unknown]
  - Renal cancer [Unknown]
  - Metastases to adrenals [Unknown]
